FAERS Safety Report 9411532 (Version 4)
Quarter: 2013Q4

REPORT INFORMATION
  Report Type: Spontaneous
  Country: US (occurrence: US)
  Receive Date: 20130722
  Receipt Date: 20131025
  Transmission Date: 20140711
  Serious: Yes (Death, Hospitalization, Other)
  Sender: FDA-Public Use
  Company Number: US-ASTELLAS-2013US007515

PATIENT
  Sex: Male

DRUGS (2)
  1. PROGRAF [Suspect]
     Indication: LUNG TRANSPLANT
     Dosage: 3 MG, BID
     Route: 048
     Dates: start: 201112
  2. PROGRAF [Suspect]
     Dosage: UNK
     Route: 048

REACTIONS (8)
  - Off label use [Unknown]
  - Hepatomegaly [Unknown]
  - Obliterative bronchiolitis [Fatal]
  - Chronic respiratory failure [Fatal]
  - Post transplant lymphoproliferative disorder [Unknown]
  - Lymphoma [Unknown]
  - Abdominal pain [Unknown]
  - Lung transplant rejection [Unknown]
